FAERS Safety Report 16704719 (Version 1)
Quarter: 2019Q3

REPORT INFORMATION
  Report Type: Report from Study
  Country: US (occurrence: US)
  Receive Date: 20190814
  Receipt Date: 20190814
  Transmission Date: 20191004
  Serious: Yes (Hospitalization, Other)
  Sender: FDA-Public Use
  Company Number: US-GILEAD-2019-0423515

PATIENT
  Age: 16 Year
  Sex: Female

DRUGS (11)
  1. MINOCYCLINE [Concomitant]
     Active Substance: MINOCYCLINE HYDROCHLORIDE
  2. TOBRAMYCIN. [Concomitant]
     Active Substance: TOBRAMYCIN
  3. BETHKIS [Concomitant]
     Active Substance: TOBRAMYCIN
  4. DICYCLOMINE [DICYCLOVERINE] [Concomitant]
  5. AZTREONAM LYSINE [Suspect]
     Active Substance: AZTREONAM LYSINE
     Indication: CYSTIC FIBROSIS
     Dosage: 75 MG, TID FOR 28 DAYS ON AND 28 DAYS OFF
     Dates: start: 20160610
  6. SYMDEKO [Suspect]
     Active Substance: IVACAFTOR\TEZACAFTOR
     Indication: CYSTIC FIBROSIS
     Dosage: 1 DOSAGE FORM, QPM
     Route: 065
     Dates: start: 20180628
  7. TOBI [Concomitant]
     Active Substance: TOBRAMYCIN
  8. LINEZOLID. [Concomitant]
     Active Substance: LINEZOLID
  9. SPRINTEC [Concomitant]
     Active Substance: ETHINYL ESTRADIOL\NORGESTIMATE
  10. BACTRIM [Concomitant]
     Active Substance: SULFAMETHOXAZOLE\TRIMETHOPRIM
  11. DOXYCYCLINE. [Concomitant]
     Active Substance: DOXYCYCLINE

REACTIONS (1)
  - Cystic fibrosis [Unknown]

NARRATIVE: CASE EVENT DATE: 20190808
